FAERS Safety Report 21184475 (Version 1)
Quarter: 2022Q3

REPORT INFORMATION
  Report Type: Spontaneous
  Country: US (occurrence: None)
  Receive Date: 20220805
  Receipt Date: 20220805
  Transmission Date: 20221026
  Serious: Yes (Other)
  Sender: FDA-Public Use
  Company Number: None

PATIENT
  Age: 65 Year
  Sex: Female

DRUGS (13)
  1. EPCLUSA [Suspect]
     Active Substance: SOFOSBUVIR\VELPATASVIR
     Indication: Hepatitis C
     Dosage: 1 TABLET DAILY PO
     Route: 048
     Dates: start: 20220630
  2. LATUDA [Concomitant]
     Active Substance: LURASIDONE HYDROCHLORIDE
  3. LEVOCETIRIZINE [Concomitant]
     Active Substance: LEVOCETIRIZINE
  4. PREGABALIN [Concomitant]
     Active Substance: PREGABALIN
  5. LEVOTHYROXINE [Concomitant]
     Active Substance: LEVOTHYROXINE
  6. LISINOPRIL [Concomitant]
     Active Substance: LISINOPRIL
  7. GABAPENTIN [Concomitant]
     Active Substance: GABAPENTIN
  8. ALBUTEROL [Concomitant]
     Active Substance: ALBUTEROL
  9. TIZANIDINE [Concomitant]
     Active Substance: TIZANIDINE
  10. PROMETHAZINE DM [Concomitant]
     Active Substance: DEXTROMETHORPHAN HYDROBROMIDE\PROMETHAZINE HYDROCHLORIDE
  11. ONDANSETRON [Concomitant]
     Active Substance: ONDANSETRON
  12. IBUPROFEN [Concomitant]
     Active Substance: IBUPROFEN
  13. ACETAMINOPHEN [Concomitant]
     Active Substance: ACETAMINOPHEN

REACTIONS (2)
  - Headache [None]
  - Constipation [None]

NARRATIVE: CASE EVENT DATE: 20220805
